FAERS Safety Report 9690984 (Version 1)
Quarter: 2013Q4

REPORT INFORMATION
  Report Type: Spontaneous
  Country: US (occurrence: US)
  Receive Date: 20131115
  Receipt Date: 20131115
  Transmission Date: 20140711
  Serious: Yes (Hospitalization)
  Sender: FDA-Public Use
  Company Number: US-B.I. PHARMACEUTICALS,INC./RIDGEFIELD-2013-BI-36678BP

PATIENT
  Age: 79 Year
  Sex: Female
  Weight: 59 kg

DRUGS (4)
  1. PRADAXA [Suspect]
     Indication: CARDIOVASCULAR EVENT PROPHYLAXIS
     Dosage: 300 MG
     Route: 048
     Dates: start: 201209
  2. PRADAXA [Suspect]
     Indication: ATRIAL FIBRILLATION
  3. REMICADE [Concomitant]
     Indication: RHEUMATOID ARTHRITIS
     Route: 042
  4. FLECAINIDE [Concomitant]
     Indication: ATRIAL FIBRILLATION
     Route: 048

REACTIONS (3)
  - Chest pain [Recovered/Resolved]
  - Skin discolouration [Unknown]
  - Amnesia [Not Recovered/Not Resolved]
